FAERS Safety Report 23835895 (Version 1)
Quarter: 2024Q2

REPORT INFORMATION
  Report Type: Spontaneous
  Country: US (occurrence: US)
  Receive Date: 20240509
  Receipt Date: 20240509
  Transmission Date: 20240716
  Serious: No
  Sender: FDA-Public Use
  Company Number: US-GSKCCFUS-Case-02001122_AE-111087

PATIENT
  Sex: Female

DRUGS (1)
  1. TRELEGY ELLIPTA [Suspect]
     Active Substance: FLUTICASONE FUROATE\UMECLIDINIUM BROMIDE\VILANTEROL TRIFENATATE
     Indication: Product used for unknown indication
     Dosage: 1 PUFF(S), QD, 200MCG/62.5MCG/25MCG
     Route: 055

REACTIONS (4)
  - Cough [Not Recovered/Not Resolved]
  - Chest discomfort [Not Recovered/Not Resolved]
  - Lung disorder [Not Recovered/Not Resolved]
  - Eosinophil count increased [Unknown]
